FAERS Safety Report 14391226 (Version 1)
Quarter: 2018Q1

REPORT INFORMATION
  Report Type: Spontaneous
  Country: US (occurrence: US)
  Receive Date: 20180116
  Receipt Date: 20180116
  Transmission Date: 20180509
  Serious: No
  Sender: FDA-Public Use
  Company Number: US-ACCORD-059995

PATIENT
  Age: 68 Year
  Sex: Female
  Weight: 72.57 kg

DRUGS (1)
  1. BUSPIRONE [Suspect]
     Active Substance: BUSPIRONE HYDROCHLORIDE
     Indication: ANXIETY
     Dosage: STRENGTH: 5 MG?QD
     Route: 048
     Dates: start: 20170818

REACTIONS (5)
  - Dry mouth [Unknown]
  - Nasal dryness [Unknown]
  - Sinus disorder [Unknown]
  - Nausea [Recovered/Resolved]
  - Dry throat [Unknown]
